FAERS Safety Report 22354761 (Version 1)
Quarter: 2023Q2

REPORT INFORMATION
  Report Type: Spontaneous
  Country: GB (occurrence: GB)
  Receive Date: 20230523
  Receipt Date: 20230523
  Transmission Date: 20230721
  Serious: Yes (Other)
  Sender: FDA-Public Use
  Company Number: GB-MHRA-MED-202305100957298320-NPZJQ

PATIENT
  Age: 70 Year
  Sex: Female
  Weight: 54 kg

DRUGS (1)
  1. ZOLEDRONIC ACID [Suspect]
     Active Substance: ZOLEDRONIC ACID
     Indication: Osteoporosis
     Route: 065
     Dates: start: 20230329

REACTIONS (14)
  - Eye inflammation [Recovered/Resolved]
  - Nasopharyngitis [Unknown]
  - Influenza like illness [Unknown]
  - Musculoskeletal discomfort [Unknown]
  - Back pain [Unknown]
  - Headache [Unknown]
  - Eye pain [Unknown]
  - Pain in jaw [Unknown]
  - Ocular hyperaemia [Unknown]
  - Eye swelling [Unknown]
  - Photophobia [Unknown]
  - Eye infection [Recovered/Resolved]
  - Scleritis [Recovered/Resolved]
  - Sleep disorder [Unknown]

NARRATIVE: CASE EVENT DATE: 20230403
